FAERS Safety Report 6217381-9 (Version None)
Quarter: 2009Q2

REPORT INFORMATION
  Report Type: 
  Country: None (occurrence: None)
  Receive Date: 20090608
  Receipt Date: 20080826
  Transmission Date: 20091009
  Serious: No
  Sender: FDA-Public Use
  Company Number: A0744701A

PATIENT
  Age: 56 Year
  Sex: Male

DRUGS (11)
  1. BUPROPION HYDROCHLORIDE [Suspect]
     Indication: DEPRESSION
     Dosage: 150MG TWICE PER DAY
     Route: 048
     Dates: start: 20080801
  2. PAXIL [Suspect]
     Indication: DEPRESSION
     Dosage: 20MG PER DAY
     Route: 048
     Dates: start: 20080501, end: 20080823
  3. PLAVIX [Concomitant]
  4. VYTORIN [Concomitant]
  5. FLOMAX [Concomitant]
  6. NEXIUM [Concomitant]
  7. ATENOLOL [Concomitant]
  8. ALTACE [Concomitant]
  9. NIASPAN [Concomitant]
  10. HYDROCHLOROTHIAZIDE [Concomitant]
  11. ASPIRIN [Concomitant]

REACTIONS (5)
  - DIZZINESS [None]
  - ERECTILE DYSFUNCTION [None]
  - NAUSEA [None]
  - PROSTATE INFECTION [None]
  - URINARY RETENTION [None]
